FAERS Safety Report 18543868 (Version 5)
Quarter: 2023Q2

REPORT INFORMATION
  Report Type: Report from Study
  Country: US (occurrence: US)
  Receive Date: 20201124
  Receipt Date: 20230418
  Transmission Date: 20230721
  Serious: Yes (Hospitalization, Other)
  Sender: FDA-Public Use
  Company Number: US-TAKEDA-US201923493

PATIENT
  Age: 66 Year
  Sex: Male
  Weight: 61 kg

DRUGS (17)
  1. HUMAN IMMUNOGLOBULIN G [Suspect]
     Active Substance: HUMAN IMMUNOGLOBULIN G
     Indication: Chronic inflammatory demyelinating polyradiculoneuropathy
     Dosage: 140 GRAM, Q3WEEKS
     Route: 042
     Dates: start: 20091022
  2. HUMAN IMMUNOGLOBULIN G [Suspect]
     Active Substance: HUMAN IMMUNOGLOBULIN G
     Dosage: 2000 MILLIGRAM/KILOGRAM
     Route: 042
     Dates: start: 20091022
  3. HUMAN IMMUNOGLOBULIN G [Suspect]
     Active Substance: HUMAN IMMUNOGLOBULIN G
     Dosage: 150 GRAM, Q3WEEKS
     Route: 042
  4. HUMAN IMMUNOGLOBULIN G [Suspect]
     Active Substance: HUMAN IMMUNOGLOBULIN G
     Dosage: 120 GRAM, Q3WEEKS
     Route: 042
     Dates: start: 20091022
  5. HUMAN IMMUNOGLOBULIN G [Suspect]
     Active Substance: HUMAN IMMUNOGLOBULIN G
     Dosage: 120 GRAM
     Route: 042
     Dates: start: 20091022
  6. DIPHENHYDRAMINE [Concomitant]
     Active Substance: DIPHENHYDRAMINE
     Route: 065
  7. COMBIGAN [Concomitant]
     Active Substance: BRIMONIDINE TARTRATE\TIMOLOL MALEATE
     Route: 065
  8. RITUXAN [Concomitant]
     Active Substance: RITUXIMAB
  9. EPINEPHRINE [Concomitant]
     Active Substance: EPINEPHRINE
     Route: 065
  10. SODIUM CHLORIDE [Concomitant]
     Active Substance: SODIUM CHLORIDE
     Route: 065
  11. ACETAMINOPHEN [Concomitant]
     Active Substance: ACETAMINOPHEN
     Route: 065
  12. TRAVOPROST [Concomitant]
     Active Substance: TRAVOPROST
     Route: 065
  13. HEPARIN [Concomitant]
     Active Substance: HEPARIN SODIUM
  14. DEXTROSE [Concomitant]
     Active Substance: DEXTROSE\DEXTROSE MONOHYDRATE
  15. VITAMIN D [Concomitant]
     Active Substance: VITAMIN D NOS
     Dosage: UNK
  16. PRIVIGEN [Concomitant]
     Active Substance: HUMAN IMMUNOGLOBULIN G
     Route: 065
  17. DIPHENHYDRAMINE HYDROCHLORIDE [Concomitant]
     Active Substance: DIPHENHYDRAMINE HYDROCHLORIDE

REACTIONS (8)
  - Pneumonia [Unknown]
  - Gait disturbance [Unknown]
  - Mobility decreased [Unknown]
  - Fall [Unknown]
  - Skin abrasion [Unknown]
  - Inability to afford medication [Unknown]
  - Hypoaesthesia [Unknown]
  - Back pain [Unknown]

NARRATIVE: CASE EVENT DATE: 20220928
